FAERS Safety Report 6388750-1 (Version None)
Quarter: 2009Q4

REPORT INFORMATION
  Report Type: 
  Country: None (occurrence: None)
  Receive Date: 20091005
  Receipt Date: 20090514
  Transmission Date: 20100525
  Serious: Yes (Other)
  Sender: FDA-Public Use
  Company Number: US-BAYER-200920296NA

PATIENT
  Age: 53 Year
  Sex: Male
  Weight: 95 kg

DRUGS (26)
  1. MAGNEVIST [Suspect]
     Indication: NUCLEAR MAGNETIC RESONANCE IMAGING BRAIN
     Dosage: TOTAL DAILY DOSE: 20 ML
     Route: 042
     Dates: start: 20030312, end: 20030312
  2. MAGNEVIST [Suspect]
     Dosage: TOTAL DAILY DOSE: 20 ML
     Route: 042
     Dates: start: 20040921, end: 20040921
  3. MAGNEVIST [Suspect]
     Dosage: TOTAL DAILY DOSE: 15 ML
     Route: 042
     Dates: start: 20060207, end: 20060207
  4. MAGNEVIST [Suspect]
     Dosage: TOTAL DAILY DOSE: 15 ML
     Route: 042
     Dates: start: 20070822, end: 20070822
  5. OMNISCAN [Suspect]
     Indication: NUCLEAR MAGNETIC RESONANCE IMAGING
  6. OPTIMARK [Suspect]
     Indication: NUCLEAR MAGNETIC RESONANCE IMAGING
  7. MULTIHANCE [Suspect]
     Indication: NUCLEAR MAGNETIC RESONANCE IMAGING
  8. PROHANCE [Suspect]
     Indication: NUCLEAR MAGNETIC RESONANCE IMAGING
  9. RENAGEL [Concomitant]
  10. REQUIP [Concomitant]
  11. LEXAPRO [Concomitant]
  12. COUMADIN [Concomitant]
  13. COREG [Concomitant]
  14. PANCREASE [Concomitant]
  15. DANAZOL [Concomitant]
  16. XYZAL [Concomitant]
  17. NEPHROCAPS [Concomitant]
  18. ALBUTEROL [Concomitant]
  19. SEVELAMER [Concomitant]
  20. EPOETIN ALFA [Concomitant]
  21. PRILOSEC [Concomitant]
  22. ALLOPURINOL [Concomitant]
  23. NOVOLOG [Concomitant]
  24. VANCOMYCIN [Concomitant]
     Route: 042
  25. HEPARIN [Concomitant]
     Route: 058
  26. AVELOX [Concomitant]

REACTIONS (16)
  - ARTHRALGIA [None]
  - DEFORMITY [None]
  - ERYTHEMA [None]
  - FIBROSIS [None]
  - GENERAL PHYSICAL HEALTH DETERIORATION [None]
  - JOINT RANGE OF MOTION DECREASED [None]
  - MOBILITY DECREASED [None]
  - MUSCULOSKELETAL STIFFNESS [None]
  - NEPHROGENIC SYSTEMIC FIBROSIS [None]
  - OEDEMA PERIPHERAL [None]
  - PAIN [None]
  - PAIN IN EXTREMITY [None]
  - PAIN OF SKIN [None]
  - SCAR [None]
  - SKIN HYPERTROPHY [None]
  - SKIN INDURATION [None]
